FAERS Safety Report 25211511 (Version 1)
Quarter: 2025Q2

REPORT INFORMATION
  Report Type: Spontaneous
  Country: US (occurrence: US)
  Receive Date: 20250418
  Receipt Date: 20250418
  Transmission Date: 20250716
  Serious: No
  Sender: ROCHE
  Company Number: US-ROCHE-10000256835

PATIENT
  Age: 62 Year
  Sex: Male

DRUGS (2)
  1. CELLCEPT [Suspect]
     Active Substance: MYCOPHENOLATE MOFETIL
     Indication: Product used for unknown indication
     Route: 065
  2. ZILBRYSQ [Concomitant]
     Active Substance: ZILUCOPLAN

REACTIONS (5)
  - Joint stiffness [Unknown]
  - Abdominal distension [Unknown]
  - Headache [Unknown]
  - Diarrhoea [Unknown]
  - Arthralgia [Unknown]
